FAERS Safety Report 23571693 (Version 2)
Quarter: 2024Q1

REPORT INFORMATION
  Report Type: Report from Study
  Country: DE (occurrence: DE)
  Receive Date: 20240227
  Receipt Date: 20240322
  Transmission Date: 20240410
  Serious: Yes (Hospitalization, Other)
  Sender: FDA-Public Use
  Company Number: DE-KRKA-DE2023K07524STU

PATIENT
  Age: 76 Year
  Sex: Male
  Weight: 73 kg

DRUGS (29)
  1. DEXAMETHASONE [Suspect]
     Active Substance: DEXAMETHASONE
     Indication: Plasma cell myeloma
     Dosage: 20 PER DAY ON CYCLE DAYS 1, 2, 8, 15, 22 OF A 21 DAYS LONG CYCLE
     Route: 048
     Dates: start: 20231025
  2. DEXAMETHASONE [Suspect]
     Active Substance: DEXAMETHASONE
     Indication: Plasma cell myeloma
     Dosage: 20 MG PER DAY ON CYCLE DAYS 1, 2, 8, 15, 16, 22 OF A 21 DAYS LONG CYCLE
     Route: 048
     Dates: end: 20231018
  3. DEXAMETHASONE [Suspect]
     Active Substance: DEXAMETHASONE
     Indication: Plasma cell myeloma
     Dosage: 20 MG, PER DAY ON CYCLE DAYS 1, 2, 8, 9, 15, 16, 22, 23 OF A 21 DAYS LONG CYCLE,DEXAMETHASON TAD,...
     Route: 048
     Dates: start: 20230330, end: 20230726
  4. DIMETHINDENE [Concomitant]
     Active Substance: DIMETHINDENE
     Indication: Product used for unknown indication
     Dosage: 1 MG
     Route: 065
  5. CALCIUM CARBONATE\CHOLECALCIFEROL [Concomitant]
     Active Substance: CALCIUM CARBONATE\CHOLECALCIFEROL
     Indication: Product used for unknown indication
     Route: 065
  6. ACETAMINOPHEN [Concomitant]
     Active Substance: ACETAMINOPHEN
     Indication: Product used for unknown indication
     Dosage: 500 MG
     Route: 065
  7. LERCANIDIPINE [Concomitant]
     Active Substance: LERCANIDIPINE
     Indication: Product used for unknown indication
     Dosage: 10 MG
     Route: 065
  8. ELIQUIS [Concomitant]
     Active Substance: APIXABAN
     Indication: Product used for unknown indication
     Dosage: 5MG
     Route: 065
  9. LENALIDOMIDE [Suspect]
     Active Substance: LENALIDOMIDE
     Indication: Plasma cell myeloma
     Dosage: PER DAY ON CYCLE DAYS 1-21
     Route: 048
     Dates: start: 20230717
  10. LENALIDOMIDE [Suspect]
     Active Substance: LENALIDOMIDE
     Indication: Plasma cell myeloma
     Dosage: PER DAY ON CYCLE DAYS 1-21,
     Route: 048
     Dates: start: 20230330, end: 202305
  11. LENALIDOMIDE [Suspect]
     Active Substance: LENALIDOMIDE
     Indication: Plasma cell myeloma
     Dosage: 15 MG PER DAY ON CYCLE DAYS 1-21 OF A 21 DAYS LONG CYCLE
     Route: 048
     Dates: start: 202305, end: 20230509
  12. LENALIDOMIDE [Suspect]
     Active Substance: LENALIDOMIDE
     Indication: Plasma cell myeloma
     Dosage: 15 MG PER DAY ON CYCLE DAYS 1-21 OF A 28 DAYS LONG CYCLE
     Route: 048
     Dates: start: 20230717, end: 20240116
  13. DIGOXIN [Concomitant]
     Active Substance: DIGOXIN
     Indication: Product used for unknown indication
     Dosage: 0.25 MG, 1X PER DAY
     Route: 048
     Dates: start: 20230622
  14. COTRIM [Concomitant]
     Active Substance: SULFAMETHOXAZOLE\TRIMETHOPRIM
     Indication: Product used for unknown indication
     Route: 065
  15. MONTELUKAST [Concomitant]
     Active Substance: MONTELUKAST SODIUM
     Indication: Product used for unknown indication
     Dosage: 10 MG
     Route: 065
  16. FRESUBIN [Concomitant]
     Active Substance: AMINO ACIDS\DEXTROSE\ELECTROLYTES NOS\SOYBEAN OIL\VITAMINS
     Indication: Product used for unknown indication
     Dosage: 1 DOSAGE FORM, 2X PER DAY 1-1-0,  ENERGY DRINK STARWBERRY
     Route: 048
     Dates: start: 20230622
  17. MOVICOL [Concomitant]
     Active Substance: POLYETHYLENE GLYCOL 3350\POTASSIUM CHLORIDE\SODIUM BICARBONATE\SODIUM CHLORIDE
     Indication: Product used for unknown indication
     Dosage: 1 DOSAGE FORM, 2X PER DAY 1-0-1
     Route: 048
     Dates: start: 20230623
  18. TORSEMIDE [Suspect]
     Active Substance: TORSEMIDE
     Indication: Product used for unknown indication
     Route: 065
  19. TORSEMIDE [Concomitant]
     Active Substance: TORSEMIDE
     Indication: Product used for unknown indication
     Dosage: 10 MG, 2X PER DAY 1-1-0, TORASEMID HEXAL 10 MG
     Route: 048
     Dates: start: 20230627
  20. Calcium-Sandoz D Osteo [Concomitant]
     Indication: Product used for unknown indication
     Dosage: 1 DF, 2X PER DAY 1-0-1, CALCIUM-SANDOZ D OSTEO 500MG/400 I.U.
     Route: 048
     Dates: start: 20230622
  21. DARATUMUMAB [Suspect]
     Active Substance: DARATUMUMAB
     Indication: Plasma cell myeloma
     Dosage: 1822 PER DAY ON DAY 1 OF A 21 DAY LONG CYCLE
     Route: 058
     Dates: start: 20230523
  22. DARATUMUMAB [Suspect]
     Active Substance: DARATUMUMAB
     Indication: Plasma cell myeloma
     Dosage: 1800 PER DAY ON DAY 1 OF A 21 DAY LONG CYCLE
     Route: 065
     Dates: start: 20231025
  23. DARATUMUMAB [Suspect]
     Active Substance: DARATUMUMAB
     Indication: Plasma cell myeloma
     Dosage: 1800 MG PER DAY ON DAY 1 OF A 21 DAY LONG CYCLE
     Route: 058
     Dates: start: 20230330
  24. ALDACTONE [Concomitant]
     Active Substance: SPIRONOLACTONE
     Indication: Product used for unknown indication
     Dosage: 25 MG, 1X PER DAY 1-0-0, ALDACTONE 25
     Route: 048
     Dates: start: 20230623
  25. METOPROLOL [Concomitant]
     Active Substance: METOPROLOL
     Indication: Product used for unknown indication
     Dosage: 50 MG, 2X PER DAY 1.5-0-1.5
     Route: 048
     Dates: start: 20230622
  26. ACYCLOVIR [Concomitant]
     Active Substance: ACYCLOVIR
     Indication: Product used for unknown indication
     Dosage: 400 MG, 2X PER DAY  1-0-1
     Route: 048
     Dates: start: 20230622
  27. ENOXAPARIN SODIUM [Concomitant]
     Active Substance: ENOXAPARIN SODIUM
     Indication: Product used for unknown indication
     Dosage: 40MG 0.4ML
     Route: 058
     Dates: start: 20230623
  28. PANTOPRAZOLE SODIUM [Concomitant]
     Active Substance: PANTOPRAZOLE SODIUM
     Indication: Product used for unknown indication
     Dosage: 40 MG, 1X PER DAY 1-0-0,PANTOPRAZOL HEXAL
     Route: 048
     Dates: start: 20230622
  29. CANDESARTAN [Concomitant]
     Active Substance: CANDESARTAN
     Indication: Product used for unknown indication
     Dosage: 16 MG, 1X PER DAY 1-0-0,CANDESARTAN KRKA
     Route: 048
     Dates: start: 20230622

REACTIONS (13)
  - Neutropenia [Recovering/Resolving]
  - Renal oncocytoma [Recovered/Resolved]
  - Calculus bladder [Recovered/Resolved]
  - Haemoglobin decreased [Recovered/Resolved]
  - Fatigue [Recovered/Resolved]
  - Rash [Recovering/Resolving]
  - Cardiac failure acute [Recovered/Resolved]
  - Vertigo [Recovering/Resolving]
  - Malaise [Recovered/Resolved]
  - Dyspnoea [Recovered/Resolved]
  - Leukopenia [Unknown]
  - Febrile neutropenia [Unknown]
  - Pneumonia [Recovered/Resolved]

NARRATIVE: CASE EVENT DATE: 20230501
